FAERS Safety Report 8177301-7 (Version None)
Quarter: 2012Q1

REPORT INFORMATION
  Report Type: 
  Country: None (occurrence: None)
  Receive Date: 20120301
  Receipt Date: 20120227
  Transmission Date: 20120608
  Serious: No
  Sender: FDA-Public Use
  Company Number: US-PFIZER INC-2012017098

PATIENT
  Sex: Female
  Weight: 65.76 kg

DRUGS (6)
  1. IBUPROFEN (ADVIL) [Suspect]
     Indication: NEUROMYOPATHY
  2. ACETAMINOPHEN [Suspect]
     Dosage: UNK
  3. ACTONEL [Concomitant]
     Dosage: UNK, MONTHLY
  4. IBUPROFEN (ADVIL) [Suspect]
     Indication: PAIN
     Dosage: UNK, AS NEEDED
     Dates: start: 20111201
  5. IBUPROFEN (ADVIL) [Suspect]
     Indication: OSTEOARTHRITIS
  6. CRESTOR [Concomitant]
     Dosage: 20 MG, DAILY

REACTIONS (3)
  - CIRCUMSTANCE OR INFORMATION CAPABLE OF LEADING TO MEDICATION ERROR [None]
  - HEADACHE [None]
  - DRUG INEFFECTIVE [None]
